FAERS Safety Report 5945215-6 (Version None)
Quarter: 2008Q4

REPORT INFORMATION
  Report Type: 
  Country: None (occurrence: None)
  Receive Date: 20081107
  Receipt Date: 20081103
  Transmission Date: 20090506
  Serious: Yes (Congenital Anomaly)
  Sender: FDA-Public Use
  Company Number: GB-TEVA-179909ISR

PATIENT
  Sex: Female

DRUGS (3)
  1. MIRTAZAPINE [Suspect]
     Indication: DEPRESSION
     Route: 064
     Dates: start: 20080201
  2. PROPRANOLOL [Suspect]
     Indication: ANXIETY
     Route: 064
     Dates: start: 20080201
  3. ORLISTAT [Suspect]
     Indication: OBESITY
     Route: 064
     Dates: start: 20080201

REACTIONS (4)
  - CAESAREAN SECTION [None]
  - MATERNAL DRUGS AFFECTING FOETUS [None]
  - NEONATAL DISORDER [None]
  - TRANSPOSITION OF THE GREAT VESSELS [None]
